FAERS Safety Report 6962904-5 (Version None)
Quarter: 2010Q3

REPORT INFORMATION
  Report Type: 
  Country: None (occurrence: None)
  Receive Date: 20100902
  Receipt Date: 20100826
  Transmission Date: 20110219
  Serious: Yes (Death, Life-Threatening, Other)
  Sender: FDA-Public Use
  Company Number: US-PFIZER INC-2010109595

PATIENT
  Sex: Male
  Weight: 66.5 kg

DRUGS (51)
  1. ARGATROBAN [Suspect]
     Indication: THROMBOCYTOPENIA
     Dosage: 0.5 TO 7.5 MG/HR
     Route: 042
     Dates: start: 20100514, end: 20100515
  2. BLINDED THERAPY [Suspect]
     Indication: SEPSIS
     Dosage: FIRST LOADING DOSE (1 IN 12 HR)
     Route: 042
     Dates: start: 20100419, end: 20100420
  3. BLINDED THERAPY [Suspect]
     Dosage: SECOND LOADING DOSE (1 IN 12 HR)
     Route: 042
     Dates: start: 20100420, end: 20100420
  4. BLINDED THERAPY [Suspect]
     Dosage: MAINTENANCE DOSES 1 - 9 (1 IN 12 HR)
     Route: 042
     Dates: start: 20100420, end: 20100424
  5. CEFTRIAXONE [Concomitant]
  6. AZITHROMYCIN [Concomitant]
  7. CEFEPIME [Concomitant]
  8. VANCOMYCIN [Concomitant]
  9. METRONIDAZOLE [Concomitant]
  10. ONDANSETRON [Concomitant]
  11. COMBIVENT [Concomitant]
  12. LEVOTHYROXINE [Concomitant]
  13. DIGOXIN [Concomitant]
  14. FLUOXETINE [Concomitant]
  15. LACTOBACILLUS ACIDOPHILUS [Concomitant]
  16. BUPROPION [Concomitant]
  17. OMEPRAZOLE [Concomitant]
  18. ALBUTEROL SULFATE [Concomitant]
  19. INSULIN ASPART [Concomitant]
  20. ETOMIDATE [Concomitant]
  21. NOREPINEPHRINE BITARTRATE [Concomitant]
  22. MIDAZOLAM [Concomitant]
  23. SODIUM BICARBONATE [Concomitant]
  24. HEPARIN [Concomitant]
  25. MAGNESIUM SULFATE [Concomitant]
  26. PANTOPRAZOLE [Concomitant]
  27. CALCIUM GLUCONATE [Concomitant]
  28. FENTANYL CITRATE [Concomitant]
  29. FUROSEMIDE [Concomitant]
  30. POTASSIUM CHLORIDE [Concomitant]
  31. METOPROLOL [Concomitant]
  32. CHLORHEXIDINE GLUCONATE [Concomitant]
  33. NYSTATIN [Concomitant]
  34. MICONAZOLE [Concomitant]
  35. INSULIN [Concomitant]
  36. INSULIN GLARGINE [Concomitant]
  37. GLUCOSE [Concomitant]
  38. MEGESTROL ACETATE [Concomitant]
  39. MIDODRINE HYDROCHLORIDE [Concomitant]
  40. ERGOCALCIFEROL [Concomitant]
  41. DRONABINOL [Concomitant]
  42. INSULIN LISPRO [Concomitant]
  43. GRANULEX [Concomitant]
  44. OXYCODONE AND ACETAMINOPHEN [Concomitant]
  45. OXYCODONE [Concomitant]
  46. SODIUM CHLORIDE [Concomitant]
  47. NALOXONE [Concomitant]
  48. IPRATROPIUM BROMIDE [Concomitant]
  49. CARVEDILOL [Concomitant]
  50. FERROUS SULFATE [Concomitant]
  51. FONDAPARINUX [Concomitant]

REACTIONS (3)
  - CARDIAC ARREST [None]
  - HYPOTENSION [None]
  - VENTRICULAR FIBRILLATION [None]
